FAERS Safety Report 18296120 (Version 7)
Quarter: 2020Q4

REPORT INFORMATION
  Report Type: Spontaneous
  Country: US (occurrence: US)
  Receive Date: 20200922
  Receipt Date: 20201117
  Transmission Date: 20210113
  Serious: Yes (Other)
  Sender: FDA-Public Use
  Company Number: US-PFIZER INC-2015467949

PATIENT
  Age: 75 Year
  Sex: Female
  Weight: 68 kg

DRUGS (4)
  1. XALATAN [Concomitant]
     Active Substance: LATANOPROST
     Dosage: UNK
  2. ESTRING [Suspect]
     Active Substance: ESTRADIOL
     Indication: VULVOVAGINAL DRYNESS
  3. FELDENE [Concomitant]
     Active Substance: PIROXICAM
     Dosage: UNK
  4. ESTRING [Suspect]
     Active Substance: ESTRADIOL
     Indication: SJOGREN^S SYNDROME
     Dosage: UNK, EVERY 3 MONTHS (INSERTED EVERY 3 MONTHS)
     Route: 067

REACTIONS (7)
  - Hydrocephalus [Unknown]
  - Body height decreased [Unknown]
  - Weight increased [Unknown]
  - Vertigo [Unknown]
  - Dizziness [Unknown]
  - Feeling abnormal [Unknown]
  - Blindness [Unknown]
